FAERS Safety Report 16283864 (Version 1)
Quarter: 2019Q2

REPORT INFORMATION
  Report Type: Spontaneous
  Country: US (occurrence: US)
  Receive Date: 20190507
  Receipt Date: 20190507
  Transmission Date: 20190711
  Serious: Yes (Other)
  Sender: FDA-Public Use
  Company Number: US-BAUSCH-BL-2019-012953

PATIENT
  Age: 32 Year
  Sex: Female

DRUGS (1)
  1. MINOCYCLINE [Suspect]
     Active Substance: MINOCYCLINE\MINOCYCLINE HYDROCHLORIDE
     Indication: ACNE
     Route: 065

REACTIONS (4)
  - Alveolitis [Recovered/Resolved]
  - Hypersensitivity [Recovering/Resolving]
  - Erythema nodosum [Recovered/Resolved]
  - Skin hyperpigmentation [Recovering/Resolving]
